FAERS Safety Report 5892268-X (Version None)
Quarter: 2008Q3

REPORT INFORMATION
  Report Type: 
  Country: None (occurrence: None)
  Receive Date: 20080919
  Receipt Date: 20080915
  Transmission Date: 20090109
  Serious: Yes (Life-Threatening)
  Sender: FDA-Public Use
  Company Number: 08H-163-0314897-00

PATIENT
  Age: 79 Year
  Sex: Female
  Weight: 62 kg

DRUGS (6)
  1. MAGNESIUM SULFATE [Suspect]
     Indication: VENTRICULAR TACHYCARDIA
     Dosage: 10 GRAMS, CONTINUOUS INFUSION, INTRAVENOUS
     Route: 042
     Dates: start: 20080903, end: 20080903
  2. PROTONIX [Concomitant]
  3. ZOSYN [Concomitant]
  4. DEXTROSE 5% AND WATER (GLUCOSE) [Concomitant]
  5. LACTATED RINGER'S SOLUTION (RINGER-LACTATE/01126301/) [Concomitant]
  6. SODIUM CHLORIDE [Concomitant]

REACTIONS (5)
  - BRADYARRHYTHMIA [None]
  - CARDIAC ARREST [None]
  - INCORRECT DOSE ADMINISTERED [None]
  - MEDICATION ERROR [None]
  - RESPIRATORY ARREST [None]
